FAERS Safety Report 14612613 (Version 2)
Quarter: 2018Q2

REPORT INFORMATION
  Report Type: Spontaneous
  Country: US (occurrence: US)
  Receive Date: 20180308
  Receipt Date: 20180419
  Transmission Date: 20180711
  Serious: Yes (Hospitalization)
  Sender: FDA-Public Use
  Company Number: US-ROCHE-2086498

PATIENT
  Age: 58 Year
  Sex: Female

DRUGS (32)
  1. PROAIR HFA [Concomitant]
     Active Substance: ALBUTEROL SULFATE
     Dosage: AER
     Route: 065
     Dates: start: 20171208, end: 20180127
  2. VORICONAZOLE. [Concomitant]
     Active Substance: VORICONAZOLE
     Route: 065
     Dates: start: 20171129, end: 20180128
  3. PRAVASTATIN. [Concomitant]
     Active Substance: PRAVASTATIN
     Route: 065
     Dates: start: 20171006
  4. PROAIR HFA [Concomitant]
     Active Substance: ALBUTEROL SULFATE
     Dosage: AER
     Route: 065
     Dates: start: 20171208, end: 20180315
  5. CHLORHEXIDINE GLUCONATE. [Concomitant]
     Active Substance: CHLORHEXIDINE GLUCONATE
     Route: 065
     Dates: start: 20170911, end: 20171110
  6. NYSTOP [Concomitant]
     Active Substance: NYSTATIN
     Dosage: POW 100000
     Route: 065
     Dates: start: 20170907, end: 20171007
  7. NYSTOP [Concomitant]
     Active Substance: NYSTATIN
     Dosage: POW 100000
     Route: 065
     Dates: start: 20171008, end: 20171105
  8. SYMBICORT [Concomitant]
     Active Substance: BUDESONIDE\FORMOTEROL FUMARATE DIHYDRATE
     Dosage: AER 160-4.5
     Route: 065
     Dates: start: 20170628, end: 20180128
  9. PROAIR HFA [Concomitant]
     Active Substance: ALBUTEROL SULFATE
     Dosage: AER
     Route: 065
     Dates: start: 20170628, end: 20180104
  10. NYSTATIN. [Concomitant]
     Active Substance: NYSTATIN
     Dosage: CRE 100000
     Route: 065
     Dates: start: 20170718, end: 20170817
  11. PREDNISONE. [Concomitant]
     Active Substance: PREDNISONE
     Route: 065
     Dates: start: 20170615, end: 20170813
  12. AMLODIPINE [Concomitant]
     Active Substance: AMLODIPINE BESYLATE
     Route: 065
     Dates: start: 20170616
  13. COMBIVENT [Concomitant]
     Active Substance: ALBUTEROL SULFATE\IPRATROPIUM BROMIDE
     Dosage: AER 20-100
     Route: 065
     Dates: start: 20171227, end: 20180328
  14. SYMBICORT [Concomitant]
     Active Substance: BUDESONIDE\FORMOTEROL FUMARATE DIHYDRATE
     Dosage: AER 160-4.5
     Route: 065
     Dates: start: 20171227, end: 20180225
  15. PANTOPRAZOLE [Concomitant]
     Active Substance: PANTOPRAZOLE
     Route: 065
     Dates: start: 20170912, end: 20180311
  16. AZITHROMYCIN ANHYDROUS. [Concomitant]
     Active Substance: AZITHROMYCIN ANHYDROUS
     Route: 065
     Dates: start: 20170615, end: 20170618
  17. CHLORHEXIDINE GLUCONATE. [Concomitant]
     Active Substance: CHLORHEXIDINE GLUCONATE
     Route: 065
     Dates: start: 20170721, end: 20170804
  18. COMBIVENT [Concomitant]
     Active Substance: ALBUTEROL SULFATE\IPRATROPIUM BROMIDE
     Dosage: AER 20-100
     Route: 065
     Dates: start: 20171227, end: 20180225
  19. COMBIVENT [Concomitant]
     Active Substance: ALBUTEROL SULFATE\IPRATROPIUM BROMIDE
     Dosage: AER 20-100
     Route: 065
     Dates: start: 20170628, end: 20180130
  20. PANTOPRAZOLE [Concomitant]
     Active Substance: PANTOPRAZOLE
     Route: 065
     Dates: start: 20170615, end: 20171211
  21. VORICONAZOLE. [Concomitant]
     Active Substance: VORICONAZOLE
     Route: 065
     Dates: start: 20171211, end: 20180110
  22. VORICONAZOLE. [Concomitant]
     Active Substance: VORICONAZOLE
     Route: 065
     Dates: start: 20171113, end: 20180112
  23. FLUCONAZOLE. [Concomitant]
     Active Substance: FLUCONAZOLE
     Route: 065
     Dates: start: 20170907, end: 20171102
  24. HYDROCHLOROTHIAZID [Concomitant]
     Active Substance: HYDROCHLOROTHIAZIDE
     Route: 065
     Dates: start: 20170616
  25. TRIAMCINOLON [Concomitant]
     Route: 065
     Dates: start: 20170907, end: 20171102
  26. HCTZ [Concomitant]
     Active Substance: HYDROCHLOROTHIAZIDE
  27. SYMBICORT [Concomitant]
     Active Substance: BUDESONIDE\FORMOTEROL FUMARATE DIHYDRATE
     Dosage: AER 160-4.5
     Route: 065
     Dates: start: 20171227, end: 20180328
  28. NYSTATIN. [Concomitant]
     Active Substance: NYSTATIN
     Dosage: CRE 100000
     Route: 065
     Dates: start: 20170727, end: 20170806
  29. HYDROCODONE BITARTRATE AND ACETAMINOPHEN [Concomitant]
     Active Substance: ACETAMINOPHEN\HYDROCODONE BITARTRATE
     Dosage: 5-325 MG
     Route: 065
     Dates: start: 20170615, end: 20170619
  30. ESBRIET [Suspect]
     Active Substance: PIRFENIDONE
     Indication: IDIOPATHIC PULMONARY FIBROSIS
     Route: 048
     Dates: start: 20160209
  31. VORICONAZOLE. [Concomitant]
     Active Substance: VORICONAZOLE
     Route: 065
     Dates: start: 20171110, end: 20180109
  32. VORICONAZOLE. [Concomitant]
     Active Substance: VORICONAZOLE
     Route: 065
     Dates: start: 20171223, end: 20180221

REACTIONS (1)
  - Dyspnoea [Unknown]

NARRATIVE: CASE EVENT DATE: 20180129
